FAERS Safety Report 7568952-9 (Version None)
Quarter: 2011Q2

REPORT INFORMATION
  Report Type: 
  Country: None (occurrence: None)
  Receive Date: 20110623
  Receipt Date: 20110610
  Transmission Date: 20111010
  Serious: Yes (Hospitalization)
  Sender: FDA-Public Use
  Company Number: DE-GENENTECH-320331

PATIENT
  Age: 42 Year
  Sex: Female

DRUGS (3)
  1. RITUXIMAB [Suspect]
     Indication: RHEUMATOID ARTHRITIS
     Dosage: 1 G, UNK
     Route: 042
     Dates: start: 20080610, end: 20090504
  2. HUMIRA [Suspect]
     Indication: RHEUMATOID ARTHRITIS
     Dosage: 40 MG, Q2W
     Route: 058
     Dates: start: 20091117, end: 20091222
  3. PREDNISONE [Suspect]
     Indication: RHEUMATOID ARTHRITIS
     Dosage: UNK
     Route: 065

REACTIONS (6)
  - SOFT TISSUE INFECTION [None]
  - ROAD TRAFFIC ACCIDENT [None]
  - SKIN NECROSIS [None]
  - DEEP VEIN THROMBOSIS [None]
  - ECCHYMOSIS [None]
  - HAEMATOMA [None]
